FAERS Safety Report 22263881 (Version 1)
Quarter: 2023Q2

REPORT INFORMATION
  Report Type: Spontaneous
  Country: ZA (occurrence: ZA)
  Receive Date: 20230428
  Receipt Date: 20230428
  Transmission Date: 20230721
  Serious: Yes (Other)
  Sender: FDA-Public Use
  Company Number: ZA-AMGEN-ZAFSP2023070574

PATIENT
  Age: 54 Year
  Sex: Male

DRUGS (2)
  1. BLINCYTO [Suspect]
     Active Substance: BLINATUMOMAB
     Indication: B precursor type acute leukaemia
     Dosage: UNK, CYCLE 1 AND 2 INFUSED OVER 24 HOURS
     Route: 042
  2. BLINCYTO [Suspect]
     Active Substance: BLINATUMOMAB
     Dosage: 28 MICROGRAM, QD, THIRD CYCLE INFUSED OVER 48 HOURS
     Route: 042

REACTIONS (3)
  - Slow response to stimuli [Unknown]
  - Neurotoxicity [Unknown]
  - Infection [Unknown]
